FAERS Safety Report 25131737 (Version 2)
Quarter: 2025Q2

REPORT INFORMATION
  Report Type: Spontaneous
  Country: ES (occurrence: ES)
  Receive Date: 20250327
  Receipt Date: 20250403
  Transmission Date: 20250716
  Serious: Yes (Death, Other)
  Sender: SHIONOGI
  Company Number: ES-shionogi-202500001417

PATIENT
  Age: 59 Year
  Sex: Male

DRUGS (6)
  1. CEFIDEROCOL [Suspect]
     Active Substance: CEFIDEROCOL
     Indication: Acinetobacter infection
     Dosage: 2GR/6HS
     Dates: start: 20250129, end: 20250129
  2. CEFIDEROCOL [Suspect]
     Active Substance: CEFIDEROCOL
     Dosage: 2GR/8HS
     Dates: start: 20250130
  3. TIGECYCLINE [Concomitant]
     Active Substance: TIGECYCLINE
     Indication: Acinetobacter infection
     Dosage: 100MG/12HRS
     Dates: start: 202501
  4. ACYCLOVIR [Concomitant]
     Active Substance: ACYCLOVIR
     Indication: Acinetobacter infection
     Dosage: 700MG/8HS
     Dates: start: 202501
  5. ISAVUCONAZOLE [Concomitant]
     Active Substance: ISAVUCONAZOLE
     Indication: Respiratory failure
     Dates: start: 202501
  6. LINEZOLID [Concomitant]
     Active Substance: LINEZOLID
     Indication: Respiratory failure
     Dates: start: 202501

REACTIONS (2)
  - Multiple organ dysfunction syndrome [Fatal]
  - Chromaturia [Unknown]

NARRATIVE: CASE EVENT DATE: 20250131
